FAERS Safety Report 10893916 (Version 2)
Quarter: 2015Q1

REPORT INFORMATION
  Report Type: Report from Study
  Country: IL (occurrence: IL)
  Receive Date: 20150306
  Receipt Date: 20150325
  Transmission Date: 20150721
  Serious: Yes (Hospitalization)
  Sender: FDA-Public Use
  Company Number: IL-ABBVIE-15P-082-1355515-00

PATIENT
  Age: 67 Year
  Sex: Male

DRUGS (1)
  1. DUODOPA [Suspect]
     Active Substance: CARBIDOPA\LEVODOPA
     Indication: PARKINSON^S DISEASE
     Route: 065
     Dates: end: 20150215

REACTIONS (3)
  - On and off phenomenon [Unknown]
  - Therapy change [Unknown]
  - Dyskinesia [Unknown]
